FAERS Safety Report 19582274 (Version 1)
Quarter: 2021Q3

REPORT INFORMATION
  Report Type: Report from Study
  Country: TH (occurrence: TH)
  Receive Date: 20210720
  Receipt Date: 20210720
  Transmission Date: 20211014
  Serious: Yes (Hospitalization)
  Sender: FDA-Public Use
  Company Number: TH-ASTRAZENECA-2021A627662

PATIENT
  Age: 764 Month
  Sex: Female

DRUGS (2)
  1. PAIN KILLER [Concomitant]
     Active Substance: UNSPECIFIED INGREDIENT
  2. TAGRISSO [Suspect]
     Active Substance: OSIMERTINIB
     Indication: LUNG NEOPLASM MALIGNANT
     Route: 048
     Dates: start: 20200704, end: 202106

REACTIONS (1)
  - Metastases to central nervous system [Not Recovered/Not Resolved]

NARRATIVE: CASE EVENT DATE: 202106
